FAERS Safety Report 8351299-0 (Version None)
Quarter: 2012Q2

REPORT INFORMATION
  Report Type: 
  Country: None (occurrence: None)
  Receive Date: 20120510
  Receipt Date: 20120427
  Transmission Date: 20120825
  Serious: Yes (Other)
  Sender: FDA-Public Use
  Company Number: US-ASTRAZENECA-2011SE56496

PATIENT
  Age: 45 Year
  Sex: Female
  Weight: 65.3 kg

DRUGS (5)
  1. RANITIDINE [Suspect]
     Route: 065
  2. PROTONIX [Suspect]
     Route: 065
  3. NEXIUM [Suspect]
     Indication: GASTROOESOPHAGEAL REFLUX DISEASE
     Route: 048
     Dates: start: 20110420
  4. OMEPRAZOLE [Suspect]
     Route: 048
  5. FAMOTIDINE [Suspect]
     Route: 065

REACTIONS (5)
  - GASTROOESOPHAGEAL REFLUX DISEASE [None]
  - ABDOMINAL DISTENSION [None]
  - DRUG INEFFECTIVE [None]
  - GASTRIC DISORDER [None]
  - INTENTIONAL DRUG MISUSE [None]
